FAERS Safety Report 23407887 (Version 1)
Quarter: 2024Q1

REPORT INFORMATION
  Report Type: Spontaneous
  Country: US (occurrence: US)
  Receive Date: 20240117
  Receipt Date: 20240117
  Transmission Date: 20240409
  Serious: No
  Sender: FDA-Public Use
  Company Number: US-AJANTA-2023AJA00257

PATIENT
  Age: 58 Year
  Sex: Male
  Weight: 220 kg

DRUGS (5)
  1. DULOXETINE [Suspect]
     Active Substance: DULOXETINE
     Indication: Major depression
     Dosage: 2 CAPSULES DAILY
     Route: 048
     Dates: start: 202310, end: 202310
  2. DULOXETINE [Suspect]
     Active Substance: DULOXETINE
     Dosage: 2 CAPSULES DAILY
     Route: 048
     Dates: start: 202310, end: 20231104
  3. DULOXETINE [Suspect]
     Active Substance: DULOXETINE
     Dosage: 2 CAPSULES DAILY
     Route: 048
     Dates: start: 20231112, end: 20231117
  4. DULOXETINE [Suspect]
     Active Substance: DULOXETINE
     Dosage: 2 CAPSULES DAILY
     Route: 048
     Dates: start: 20231118
  5. Zenex [Concomitant]

REACTIONS (4)
  - Dizziness [Recovering/Resolving]
  - Headache [Recovering/Resolving]
  - Withdrawal syndrome [Recovering/Resolving]
  - Product dose omission issue [Unknown]

NARRATIVE: CASE EVENT DATE: 20230101
